FAERS Safety Report 5587505-5 (Version None)
Quarter: 2008Q1

REPORT INFORMATION
  Report Type: 
  Country: None (occurrence: None)
  Receive Date: 20080110
  Receipt Date: 20080104
  Transmission Date: 20080703
  Serious: No
  Sender: FDA-Public Use
  Company Number: US-BAXTER-2008BH000208

PATIENT
  Age: 29 Year
  Sex: Female

DRUGS (9)
  1. VINORELBINE TARTRATE [Suspect]
     Indication: BREAST CANCER
     Dosage: DOSE UNIT:UNKNOWN
     Route: 065
  2. CYCLOPHOSPHAMIDE [Suspect]
     Indication: BREAST CANCER STAGE III
     Dosage: DOSE UNIT:UNKNOWN
     Route: 065
  3. DOXORUBICIN HCL [Suspect]
     Indication: BREAST CANCER STAGE III
     Dosage: DOSE UNIT:UNKNOWN
     Route: 065
  4. PACLITAXEL [Suspect]
     Indication: BREAST CANCER STAGE III
     Dosage: DOSE UNIT:UNKNOWN
     Route: 065
  5. TRASTUZUMAB [Suspect]
     Indication: BREAST CANCER
     Dosage: DOSE UNIT:UNKNOWN
     Route: 065
  6. ZOLEDRONIC ACID [Suspect]
     Indication: BREAST CANCER
     Dosage: DOSE UNIT:UNKNOWN
     Route: 065
  7. GEMCITABINE [Suspect]
     Indication: BREAST CANCER
     Dosage: DOSE UNIT:UNKNOWN
     Route: 065
  8. CAPECITABINE [Suspect]
     Indication: BREAST CANCER
     Dosage: DOSE UNIT:UNKNOWN
     Route: 065
  9. RADIATION THERAPY [Suspect]
     Indication: BREAST CANCER
     Dosage: DOSE UNIT:UNKNOWN
     Route: 065

REACTIONS (2)
  - AMENORRHOEA [None]
  - DRUG EXPOSURE DURING PREGNANCY [None]
